FAERS Safety Report 12598422 (Version 1)
Quarter: 2016Q3

REPORT INFORMATION
  Report Type: Spontaneous
  Country: FR (occurrence: FR)
  Receive Date: 20160726
  Receipt Date: 20160726
  Transmission Date: 20161109
  Serious: Yes (Hospitalization)
  Sender: FDA-Public Use
  Company Number: FR-ASTRAZENECA-2016SE79319

PATIENT
  Age: 66 Year
  Sex: Male

DRUGS (5)
  1. XYLOCAINE NAPHAZOLINE [Suspect]
     Active Substance: LIDOCAINE HYDROCHLORIDE\NAPHAZOLINE NITRATE
     Route: 048
     Dates: start: 20160608
  2. DETENSIEL [Suspect]
     Active Substance: BISOPROLOL FUMARATE
     Indication: HYPERTENSION
     Route: 048
     Dates: start: 2013
  3. CRESTOR [Suspect]
     Active Substance: ROSUVASTATIN CALCIUM
     Indication: DYSLIPIDAEMIA
     Route: 048
     Dates: start: 2013, end: 201603
  4. OMEXEL [Concomitant]
     Active Substance: TAMSULOSIN HYDROCHLORIDE
     Dosage: 0.4MG UNKNOWN
     Route: 048
     Dates: start: 201603
  5. TENSTATEN [Suspect]
     Active Substance: CICLETANINE HYDROCHLORIDE
     Indication: HYPERTENSION
     Route: 048
     Dates: start: 2013

REACTIONS (6)
  - Oral mucosa erosion [Recovering/Resolving]
  - Weight decreased [Unknown]
  - Off label use [Unknown]
  - Pulmonary mass [Unknown]
  - Product use issue [Unknown]
  - Pemphigus [Recovering/Resolving]

NARRATIVE: CASE EVENT DATE: 201503
